FAERS Safety Report 25087175 (Version 1)
Quarter: 2025Q1

REPORT INFORMATION
  Report Type: Spontaneous
  Country: MX (occurrence: MX)
  Receive Date: 20250318
  Receipt Date: 20250318
  Transmission Date: 20250409
  Serious: Yes (Hospitalization)
  Sender: AMGEN
  Company Number: MX-AMGEN-MEXSP2025048719

PATIENT
  Age: 84 Year
  Sex: Female

DRUGS (9)
  1. PROLIA [Suspect]
     Active Substance: DENOSUMAB
     Indication: Osteoporosis
     Route: 065
  2. LEVOTHYROXINE [Concomitant]
     Active Substance: LEVOTHYROXINE
  3. LINAGLIPTIN [Concomitant]
     Active Substance: LINAGLIPTIN
  4. LOSARTAN [Concomitant]
     Active Substance: LOSARTAN
  5. INDAPAMIDE [Concomitant]
     Active Substance: INDAPAMIDE
  6. PREGABALIN [Concomitant]
     Active Substance: PREGABALIN
  7. CALCITRIOL [Concomitant]
     Active Substance: CALCITRIOL
  8. SODIUM CHLORIDE [Concomitant]
     Active Substance: SODIUM CHLORIDE
     Indication: Hyponatraemia
  9. CARVEDILOL [Concomitant]
     Active Substance: CARVEDILOL
     Indication: Hyponatraemia
     Dosage: 6.25 MILLIGRAM, BID

REACTIONS (6)
  - Angina pectoris [Unknown]
  - Epilepsy [Unknown]
  - Hyponatraemia [Unknown]
  - Wellens^ syndrome [Unknown]
  - Stress cardiomyopathy [Unknown]
  - Inappropriate antidiuretic hormone secretion [Unknown]
